FAERS Safety Report 6910848-7 (Version None)
Quarter: 2010Q3

REPORT INFORMATION
  Report Type: 
  Country: None (occurrence: None)
  Receive Date: 20100806
  Receipt Date: 20100730
  Transmission Date: 20110219
  Serious: Yes (Other)
  Sender: FDA-Public Use
  Company Number: JP-SANOFI-AVENTIS-2010SA041993

PATIENT
  Age: 70 Year
  Sex: Male

DRUGS (2)
  1. AMARYL [Suspect]
     Indication: TYPE 2 DIABETES MELLITUS
     Route: 048
  2. ACTOS [Suspect]
     Route: 048
     Dates: end: 20100719

REACTIONS (1)
  - OEDEMA PERIPHERAL [None]
